FAERS Safety Report 7801709-X (Version None)
Quarter: 2011Q4

REPORT INFORMATION
  Report Type: 
  Country: None (occurrence: None)
  Receive Date: 20111005
  Receipt Date: 20110912
  Transmission Date: 20120403
  Serious: Yes (Hospitalization, Other)
  Sender: FDA-Public Use
  Company Number: 2011PROUSA00471

PATIENT
  Age: 72 Year
  Sex: Male
  Weight: 113.4 kg

DRUGS (9)
  1. HYDROCHLOROTHIAZIDE [Concomitant]
  2. VYTORIN [Concomitant]
  3. SINGULAIR [Concomitant]
  4. PROVENGE [Suspect]
     Indication: PROSTATE CANCER METASTATIC
     Dosage: 250 ML, SINGLE, INTRAVENOUS
     Route: 042
     Dates: start: 20110627, end: 20110627
  5. AMLODIPINE [Concomitant]
  6. ACTOS [Concomitant]
  7. ARTHROTEC [Concomitant]
  8. GLIPIZIDE [Concomitant]
  9. LISINOPRIL [Concomitant]

REACTIONS (6)
  - DEVICE RELATED INFECTION [None]
  - BLOOD GLUCOSE ABNORMAL [None]
  - OXYGEN SATURATION DECREASED [None]
  - PLATELET COUNT DECREASED [None]
  - STAPHYLOCOCCAL INFECTION [None]
  - HYPOTENSION [None]
